FAERS Safety Report 4568131-3 (Version None)
Quarter: 2005Q1

REPORT INFORMATION
  Report Type: 
  Country: None (occurrence: None)
  Receive Date: 20050202
  Receipt Date: 20050125
  Transmission Date: 20050727
  Serious: Yes (Other)
  Sender: FDA-Public Use
  Company Number: FR-ROCHE-393732

PATIENT
  Sex: Male

DRUGS (1)
  1. XENICAL [Suspect]
     Indication: OBESITY
     Route: 048

REACTIONS (1)
  - HEPATITIS [None]
